FAERS Safety Report 10744286 (Version 1)
Quarter: 2015Q1

REPORT INFORMATION
  Report Type: Spontaneous
  Country: JP (occurrence: JP)
  Receive Date: 20150128
  Receipt Date: 20150128
  Transmission Date: 20150721
  Serious: Yes (Other)
  Sender: FDA-Public Use
  Company Number: JP-JNJFOC-20150111799

PATIENT
  Age: 4 Decade
  Sex: Female

DRUGS (1)
  1. ORTHO M-21 [Suspect]
     Active Substance: ETHINYL ESTRADIOL\NORETHINDRONE
     Indication: PRODUCT USED FOR UNKNOWN INDICATION
     Route: 048

REACTIONS (2)
  - Glaucoma [Unknown]
  - Headache [Unknown]

NARRATIVE: CASE EVENT DATE: 2013
